FAERS Safety Report 4817498-7 (Version None)
Quarter: 2005Q4

REPORT INFORMATION
  Report Type: 
  Country: None (occurrence: None)
  Receive Date: 20051101
  Receipt Date: 20050929
  Transmission Date: 20060501
  Serious: Yes (Death, Life-Threatening)
  Sender: FDA-Public Use
  Company Number: GB-MERCK-0510GBR00002

PATIENT
  Age: 61 Year
  Sex: Male
  Weight: 115 kg

DRUGS (7)
  1. PROSCAR [Suspect]
     Indication: BENIGN PROSTATIC HYPERPLASIA
     Route: 048
     Dates: start: 20040528, end: 20050109
  2. WARFARIN [Concomitant]
     Route: 065
     Dates: start: 19980101, end: 20040401
  3. LANSOPRAZOLE [Concomitant]
     Route: 065
  4. BISOPROLOL [Concomitant]
     Indication: HYPERTENSION
     Route: 065
  5. LERCANIDIPINE [Concomitant]
     Indication: HYPERTENSION
     Route: 065
  6. BENDROFLUMETHIAZIDE [Concomitant]
     Indication: HYPERTENSION
     Route: 065
  7. RAMIPRIL [Concomitant]
     Indication: HYPERTENSION
     Route: 065

REACTIONS (5)
  - ARTERIOSCLEROSIS CORONARY ARTERY [None]
  - CARDIOMEGALY [None]
  - LOWER RESPIRATORY TRACT INFECTION [None]
  - PULMONARY EMBOLISM [None]
  - VENOUS THROMBOSIS LIMB [None]
